FAERS Safety Report 7868647-8 (Version None)
Quarter: 2011Q4

REPORT INFORMATION
  Report Type: 
  Country: None (occurrence: None)
  Receive Date: 20111028
  Receipt Date: 20101216
  Transmission Date: 20120403
  Serious: No
  Sender: FDA-Public Use
  Company Number: US-AMGEN-USASP2010009961

PATIENT
  Age: 58 Year
  Sex: Female

DRUGS (19)
  1. COREG [Concomitant]
     Dosage: 40 MG, UNK
  2. LEUCOVORIN CALCIUM [Concomitant]
     Dosage: 5 MG, UNK
  3. MULTIVITAMIN                       /00097801/ [Concomitant]
  4. CALCIUM [Concomitant]
  5. ENBREL [Suspect]
     Indication: PRODUCT USED FOR UNKNOWN INDICATION
     Dosage: 50 MG, QWK
     Route: 058
  6. METHOTREXATE [Concomitant]
     Dosage: 2.5 MG, UNK
  7. PREDNISONE [Concomitant]
     Dosage: 5 MG, UNK
  8. SIMVASTATIN [Concomitant]
     Dosage: 20 MG, UNK
  9. FISH OIL [Concomitant]
     Dosage: 1000 MG, UNK
  10. POTASSIUM [Concomitant]
  11. CHELATED CALCIUM [Concomitant]
  12. CYMBALTA [Concomitant]
     Dosage: 20 MG, UNK
  13. FOLIC ACID [Concomitant]
     Dosage: 1 MG, UNK
  14. VITAMIN D [Concomitant]
  15. AMLODIPINE [Concomitant]
     Dosage: 10 MG, UNK
  16. DIOVAN [Concomitant]
     Dosage: 320 MG, UNK
  17. LASIX [Concomitant]
     Dosage: 40 MG, UNK
  18. ACTONEL [Concomitant]
     Dosage: 35 MG, UNK
  19. EVOXAC [Concomitant]
     Dosage: 30 MG, UNK

REACTIONS (1)
  - INJECTION SITE ERYTHEMA [None]
